FAERS Safety Report 16884528 (Version 1)
Quarter: 2019Q4

REPORT INFORMATION
  Report Type: Report from Study
  Country: US (occurrence: US)
  Receive Date: 20191004
  Receipt Date: 20191004
  Transmission Date: 20200122
  Serious: Yes (Other)
  Sender: FDA-Public Use
  Company Number: US-GILEAD-2019-0428378

PATIENT
  Age: 54 Year
  Sex: Female

DRUGS (3)
  1. AMBRISENTAN [Suspect]
     Active Substance: AMBRISENTAN
     Indication: PULMONARY ARTERIAL HYPERTENSION
     Dosage: 10 MG, QD
     Route: 065
     Dates: start: 20141226
  2. TYVASO [Suspect]
     Active Substance: TREPROSTINIL
     Dosage: 6 DOSAGE FORM, QID
     Route: 065
  3. TYVASO [Suspect]
     Active Substance: TREPROSTINIL
     Indication: PRODUCT USED FOR UNKNOWN INDICATION
     Dosage: 8 DOSAGE FORM, QID
     Route: 065

REACTIONS (5)
  - Deafness [Not Recovered/Not Resolved]
  - Headache [Unknown]
  - Breath sounds abnormal [Unknown]
  - Respiratory disorder [Unknown]
  - Abdominal distension [Unknown]
